FAERS Safety Report 9410713 (Version 1)
Quarter: 2013Q3

REPORT INFORMATION
  Report Type: Spontaneous
  Country: US (occurrence: US)
  Receive Date: 20130719
  Receipt Date: 20130719
  Transmission Date: 20140515
  Serious: No
  Sender: FDA-Public Use
  Company Number: US-MYLANLABS-2012S1019737

PATIENT
  Age: 49 Year
  Sex: Male

DRUGS (1)
  1. THIOTHIXENE [Suspect]
     Indication: SCHIZOPHRENIA
     Route: 048
     Dates: start: 20110812

REACTIONS (3)
  - Dyskinesia [Not Recovered/Not Resolved]
  - Cough [Not Recovered/Not Resolved]
  - Salivary hypersecretion [Not Recovered/Not Resolved]
